FAERS Safety Report 8112416-0 (Version None)
Quarter: 2012Q1

REPORT INFORMATION
  Report Type: 
  Country: None (occurrence: None)
  Receive Date: 20120203
  Receipt Date: 20120120
  Transmission Date: 20120608
  Serious: Yes (Hospitalization)
  Sender: FDA-Public Use
  Company Number: BR-AMGEN-BRASP2012005977

PATIENT
  Age: 54 Year
  Sex: Male
  Weight: 103 kg

DRUGS (2)
  1. ENALAPRIL MALEATE [Concomitant]
     Dosage: UNK
  2. ENBREL [Suspect]
     Indication: RHEUMATOID ARTHRITIS
     Dosage: 50 MG, WEEKLY
     Route: 058
     Dates: start: 20101120, end: 20110901

REACTIONS (1)
  - INFLAMMATION [None]
